FAERS Safety Report 20718441 (Version 5)
Quarter: 2023Q1

REPORT INFORMATION
  Report Type: Other
  Country: CA (occurrence: CA)
  Receive Date: 20220418
  Receipt Date: 20230131
  Transmission Date: 20230417
  Serious: Yes (Death, Other)
  Sender: FDA-Public Use
  Company Number: CA-CELLTRION INC.-2022CA004531

PATIENT

DRUGS (8)
  1. RITUXIMAB [Suspect]
     Active Substance: RITUXIMAB
     Indication: Vasculitis
     Dosage: 569 MILLIGRAM
     Route: 042
  2. RITUXIMAB [Suspect]
     Active Substance: RITUXIMAB
     Dosage: 569 MILLIGRAM
     Route: 042
  3. RITUXIMAB [Suspect]
     Active Substance: RITUXIMAB
     Dosage: 569 MILLIGRAM
     Route: 042
  4. RITUXIMAB [Suspect]
     Active Substance: RITUXIMAB
     Dosage: 500 MILLIGRAM
     Route: 042
  5. RITUXIMAB [Suspect]
     Active Substance: RITUXIMAB
     Dosage: 569 MILLIGRAM
     Route: 042
  6. ACETAMINOPHEN [Concomitant]
     Active Substance: ACETAMINOPHEN
     Indication: Product used for unknown indication
     Dosage: 650 MILLIGRAM
     Route: 048
  7. DIPHENHYDRAMINE [Concomitant]
     Active Substance: DIPHENHYDRAMINE
     Indication: Product used for unknown indication
     Dosage: 50 MG
     Route: 048
  8. METHYLPREDNISOLONE [Concomitant]
     Active Substance: METHYLPREDNISOLONE
     Indication: Product used for unknown indication
     Dosage: 100 MG
     Route: 042

REACTIONS (10)
  - Death [Fatal]
  - Blood pressure systolic increased [Fatal]
  - Gingival erythema [Fatal]
  - Gingival pain [Fatal]
  - Anxiety [Fatal]
  - Gingival abscess [Fatal]
  - Tremor [Fatal]
  - Palpitations [Fatal]
  - Angina pectoris [Fatal]
  - Off label use [Fatal]
